FAERS Safety Report 5169020-6 (Version None)
Quarter: 2006Q4

REPORT INFORMATION
  Report Type: 
  Country: None (occurrence: None)
  Receive Date: 20061201
  Receipt Date: 20061121
  Transmission Date: 20070319
  Serious: Yes (Death, Hospitalization)
  Sender: FDA-Public Use
  Company Number: MEDI-0005154

PATIENT
  Age: 4 Month
  Sex: Female
  Weight: 5.7 kg

DRUGS (1)
  1. SYNAGIS [Suspect]
     Dosage: 85.5 MG, INTRAMUSCULAR
     Route: 030
     Dates: start: 20061113, end: 20061113

REACTIONS (1)
  - DEATH [None]
